FAERS Safety Report 5452319-3 (Version None)
Quarter: 2007Q3

REPORT INFORMATION
  Report Type: 
  Country: None (occurrence: None)
  Receive Date: 20070912
  Receipt Date: 20070912
  Transmission Date: 20080115
  Serious: Yes (Hospitalization)
  Sender: FDA-Public Use
  Company Number: None

PATIENT
  Sex: Male
  Weight: 75 kg

DRUGS (1)
  1. ARIXTRA [Suspect]
     Indication: DEEP VEIN THROMBOSIS
     Dosage: 7.5 DAILY SQ
     Route: 058
     Dates: start: 20070627, end: 20070907

REACTIONS (3)
  - ENTERITIS [None]
  - GASTRITIS [None]
  - NEUTROPENIA [None]
